FAERS Safety Report 5402436-9 (Version None)
Quarter: 2007Q3

REPORT INFORMATION
  Report Type: 
  Country: None (occurrence: None)
  Receive Date: 20070801
  Receipt Date: 20070731
  Transmission Date: 20080115
  Serious: Yes (Other)
  Sender: FDA-Public Use
  Company Number: A0667008A

PATIENT
  Age: 66 Year
  Sex: Female

DRUGS (1)
  1. ECOTRIN ADULT LOW STRENGTH TABLETS [Suspect]
     Route: 048

REACTIONS (1)
  - COAGULOPATHY [None]
